FAERS Safety Report 6063348-3 (Version None)
Quarter: 2009Q1

REPORT INFORMATION
  Report Type: 
  Country: None (occurrence: None)
  Receive Date: 20090129
  Receipt Date: 20090113
  Transmission Date: 20090719
  Serious: Yes (Hospitalization)
  Sender: FDA-Public Use
  Company Number: KV200900078

PATIENT
  Age: 73 Year
  Sex: Female
  Weight: 57.1 kg

DRUGS (3)
  1. MORPHINE SULFATE [Suspect]
     Indication: BACK PAIN
     Dosage: 60 MG, TID, ORAL
     Route: 048
     Dates: start: 20070101, end: 20070401
  2. COUMADIN [Concomitant]
  3. MULTIVITAMIN (VITAMIN NOS) [Concomitant]

REACTIONS (7)
  - COMA [None]
  - DIARRHOEA [None]
  - GASTRITIS [None]
  - HAEMOGLOBIN DECREASED [None]
  - LOOSE TOOTH [None]
  - POLLAKIURIA [None]
  - RENAL FAILURE [None]
